FAERS Safety Report 4570780-3 (Version None)
Quarter: 2005Q1

REPORT INFORMATION
  Report Type: 
  Country: None (occurrence: None)
  Receive Date: 20050202
  Receipt Date: 20050125
  Transmission Date: 20050727
  Serious: Yes (Death, Other)
  Sender: FDA-Public Use
  Company Number: 2005019251

PATIENT

DRUGS (1)
  1. SULPERAZON (SULBACTAM, CEFOPERAZONE) [Suspect]
     Indication: PROSTATIC OPERATION
     Dosage: 1 D

REACTIONS (3)
  - HEPATIC NECROSIS [None]
  - JAUNDICE [None]
  - PROTHROMBIN TIME PROLONGED [None]
